FAERS Safety Report 8928011 (Version 1)
Quarter: 2012Q4

REPORT INFORMATION
  Report Type: Spontaneous
  Country: US (occurrence: None)
  Receive Date: 20121121
  Receipt Date: 20121121
  Transmission Date: 20130627
  Serious: Yes (Life-Threatening, Hospitalization, Disabling)
  Sender: FDA-Public Use
  Company Number: None

PATIENT
  Age: 66 Year
  Sex: Male
  Weight: 91.17 kg

DRUGS (1)
  1. PRADAXA, 150 MG, BOEHRINGER INGOLHEIM [Suspect]
     Indication: ATRIAL FIBRILLATION
     Route: 048
     Dates: start: 201109

REACTIONS (1)
  - Embolic stroke [None]
